FAERS Safety Report 24301139 (Version 1)
Quarter: 2024Q3

REPORT INFORMATION
  Report Type: Spontaneous
  Country: US (occurrence: US)
  Receive Date: 20240910
  Receipt Date: 20240910
  Transmission Date: 20241016
  Serious: No
  Sender: SANDOZ
  Company Number: US-002147023-NVSC2024US164543

PATIENT
  Sex: Female

DRUGS (3)
  1. AMOXICILLIN [Suspect]
     Active Substance: AMOXICILLIN
     Indication: Prophylaxis
     Dosage: 500 MG
     Route: 065
  2. IBRANCE [Suspect]
     Active Substance: PALBOCICLIB
     Indication: Product used for unknown indication
     Dosage: UNK
     Route: 065
  3. LETROZOLE [Suspect]
     Active Substance: LETROZOLE
     Indication: Product used for unknown indication
     Dosage: UNK
     Route: 065

REACTIONS (3)
  - Mouth injury [Unknown]
  - White blood cell count decreased [Unknown]
  - Infection [Unknown]
